FAERS Safety Report 10422503 (Version 1)
Quarter: 2014Q3

REPORT INFORMATION
  Report Type: Spontaneous
  Country: US (occurrence: US)
  Receive Date: 20140901
  Receipt Date: 20140901
  Transmission Date: 20150326
  Serious: Yes (Death, Life-Threatening, Hospitalization, Other)
  Sender: FDA-Public Use
  Company Number: US-ASTRAZENECA-2014SE65003

PATIENT
  Age: 65 Year
  Sex: Male
  Weight: 107.5 kg

DRUGS (7)
  1. HEPARIN [Concomitant]
     Active Substance: HEPARIN SODIUM
  2. BRILINTA [Suspect]
     Active Substance: TICAGRELOR
     Indication: STENT PLACEMENT
     Route: 048
     Dates: start: 20140327
  3. BRILINTA [Suspect]
     Active Substance: TICAGRELOR
     Indication: STENT PLACEMENT
     Route: 048
     Dates: start: 20140328, end: 20140328
  4. PSEUDOPHED [Concomitant]
  5. BRILINTA [Suspect]
     Active Substance: TICAGRELOR
     Indication: STENT PLACEMENT
     Dosage: 2 TABLETS AT 3 PM AND AT 5 PM
     Route: 048
     Dates: start: 20140330, end: 20140330
  6. ASPIRIN. [Concomitant]
     Active Substance: ASPIRIN
     Dates: start: 20140327
  7. BRILINTA [Suspect]
     Active Substance: TICAGRELOR
     Indication: STENT PLACEMENT
     Dosage: 180 MG, LOADING DOSE AND THEN 90 MG IN THE EVENING
     Route: 048
     Dates: start: 20140326

REACTIONS (17)
  - Insomnia [Unknown]
  - Dyspnoea [Unknown]
  - Weight decreased [Unknown]
  - Adverse event [Unknown]
  - Body mass index increased [Unknown]
  - Cardiac arrest [Unknown]
  - Discomfort [Unknown]
  - Blood cholesterol increased [Unknown]
  - Hyperkeratosis [Unknown]
  - Weight increased [Unknown]
  - Blood triglycerides increased [Unknown]
  - Drug dose omission [Unknown]
  - Dyspepsia [Unknown]
  - Coronary artery disease [Fatal]
  - Condition aggravated [Unknown]
  - Snoring [Unknown]
  - Nocturnal dyspnoea [Unknown]

NARRATIVE: CASE EVENT DATE: 20140328
